FAERS Safety Report 10393527 (Version 1)
Quarter: 2014Q3

REPORT INFORMATION
  Report Type: Spontaneous
  Country: ES (occurrence: ES)
  Receive Date: 20140819
  Receipt Date: 20140819
  Transmission Date: 20150326
  Serious: Yes (Other)
  Sender: FDA-Public Use
  Company Number: ALCN2014ES004579

PATIENT
  Age: 57 Year
  Sex: Female
  Weight: 67 kg

DRUGS (2)
  1. MAXIDEX [Suspect]
     Active Substance: DEXAMETHASONE
     Indication: EYE ULCER
     Dosage: 1 GTT, QID
     Route: 047
     Dates: start: 20140522, end: 20140701
  2. ZAMENE [Suspect]
     Active Substance: DEFLAZACORT
     Indication: EYE ULCER
     Dosage: 1 DF, DURING 25 DAYS AND REDUCING DOSE 15 DAYS
     Route: 048
     Dates: start: 20140522, end: 20140701

REACTIONS (1)
  - Ocular hypertension [Recovering/Resolving]

NARRATIVE: CASE EVENT DATE: 20140701
